FAERS Safety Report 5291883-4 (Version None)
Quarter: 2007Q2

REPORT INFORMATION
  Report Type: 
  Country: None (occurrence: None)
  Receive Date: 20070410
  Receipt Date: 20070330
  Transmission Date: 20071010
  Serious: No
  Sender: FDA-Public Use
  Company Number: 2006UW08376

PATIENT
  Sex: Female
  Weight: 84.1 kg

DRUGS (2)
  1. SEROQUEL [Suspect]
     Route: 048
  2. SEROQUEL [Suspect]
     Dosage: 25 MG TO 150 MG
     Route: 048

REACTIONS (1)
  - DIABETES MELLITUS [None]
